FAERS Safety Report 8605732-7 (Version None)
Quarter: 2012Q3

REPORT INFORMATION
  Report Type: 
  Country: None (occurrence: None)
  Receive Date: 20120820
  Receipt Date: 20120814
  Transmission Date: 20120928
  Serious: Yes (Hospitalization)
  Sender: FDA-Public Use
  Company Number: US-BRISTOL-MYERS SQUIBB COMPANY-16774390

PATIENT
  Age: 60 Year
  Sex: Female
  Weight: 93 kg

DRUGS (1)
  1. IPILIMUMAB [Suspect]
     Indication: MALIGNANT MELANOMA
     Dosage: LAST ADMINISTERED DT:21JUN2012. REMOVED FROM PROTOCOL ON 10AUG12
     Route: 042
     Dates: start: 20120510, end: 20120621

REACTIONS (5)
  - ASPARTATE AMINOTRANSFERASE INCREASED [None]
  - HYPOXIA [None]
  - ALANINE AMINOTRANSFERASE INCREASED [None]
  - MENINGITIS VIRAL [None]
  - ENCEPHALITIS AUTOIMMUNE [None]
